FAERS Safety Report 8579724 (Version 11)
Quarter: 2015Q2

REPORT INFORMATION
  Report Type: Spontaneous
  Country: US (occurrence: US)
  Receive Date: 20120525
  Receipt Date: 20150525
  Transmission Date: 20150821
  Serious: Yes (Congenital Anomaly, Other)
  Sender: FDA-Public Use
  Company Number: US-JNJFOC-20120518256

PATIENT
  Age: 0 Year
  Sex: Male

DRUGS (12)
  1. TOPAMAX [Suspect]
     Active Substance: TOPIRAMATE
     Indication: FOETAL EXPOSURE DURING PREGNANCY
     Route: 064
  2. EPIDURAL ANESTHESIA [Suspect]
     Active Substance: UNSPECIFIED INGREDIENT
     Indication: ANAESTHESIA
     Route: 064
  3. IBUPROFEN. [Suspect]
     Active Substance: IBUPROFEN
     Indication: FOETAL EXPOSURE DURING PREGNANCY
     Route: 064
  4. ERRIN [Suspect]
     Active Substance: NORETHINDRONE
     Indication: FOETAL EXPOSURE DURING PREGNANCY
     Route: 064
  5. CAFFEINE. [Suspect]
     Active Substance: CAFFEINE
     Indication: MIGRAINE
     Route: 064
  6. IBUPROFEN. [Suspect]
     Active Substance: IBUPROFEN
     Route: 064
  7. IMITREX [Suspect]
     Active Substance: SUMATRIPTAN\SUMATRIPTAN SUCCINATE
     Indication: FOETAL EXPOSURE DURING PREGNANCY
     Route: 064
  8. UNKNOWN MEDICATION [Suspect]
     Active Substance: UNSPECIFIED INGREDIENT
     Indication: FOETAL EXPOSURE DURING PREGNANCY
     Route: 064
  9. CEPHALEXIN. [Suspect]
     Active Substance: CEPHALEXIN
     Indication: FOETAL EXPOSURE DURING PREGNANCY
     Route: 064
  10. MULTIVITAMINS [Concomitant]
     Active Substance: VITAMINS
     Indication: FOETAL EXPOSURE DURING PREGNANCY
     Route: 064
  11. ZOLOFT [Suspect]
     Active Substance: SERTRALINE HYDROCHLORIDE
     Indication: FOETAL EXPOSURE DURING PREGNANCY
     Route: 064
  12. AMOXICILLIN. [Suspect]
     Active Substance: AMOXICILLIN
     Indication: FOETAL EXPOSURE DURING PREGNANCY
     Route: 064

REACTIONS (11)
  - Otitis media [Unknown]
  - Emotional disorder [Unknown]
  - Neurogenic bladder [Unknown]
  - Hydrocephalus [Unknown]
  - Arnold-Chiari malformation [Unknown]
  - Epilepsy [Unknown]
  - Spina bifida [Unknown]
  - Body temperature fluctuation [Unknown]
  - Inguinal hernia [Unknown]
  - Meningomyelocele [Unknown]
  - Neurogenic bowel [Unknown]

NARRATIVE: CASE EVENT DATE: 200604
